FAERS Safety Report 21017171 (Version 7)
Quarter: 2023Q2

REPORT INFORMATION
  Report Type: Spontaneous
  Country: US (occurrence: US)
  Receive Date: 20220628
  Receipt Date: 20230410
  Transmission Date: 20230722
  Serious: Yes (Other)
  Sender: FDA-Public Use
  Company Number: US-PFIZER INC-PV202200010605

PATIENT
  Age: 60 Year
  Sex: Female

DRUGS (1)
  1. IBRANCE [Suspect]
     Active Substance: PALBOCICLIB
     Indication: Breast cancer metastatic
     Dosage: 75 MG
     Dates: start: 2019

REACTIONS (11)
  - Spinal operation [Unknown]
  - Alopecia [Unknown]
  - Weight fluctuation [Recovering/Resolving]
  - Peripheral swelling [Unknown]
  - Renal function test abnormal [Unknown]
  - Pain in extremity [Unknown]
  - Musculoskeletal stiffness [Unknown]
  - Malaise [Unknown]
  - Anxiety [Unknown]
  - Pain [Unknown]
  - Road traffic accident [Unknown]
